FAERS Safety Report 19682742 (Version 2)
Quarter: 2021Q3

REPORT INFORMATION
  Report Type: Spontaneous
  Country: US (occurrence: US)
  Receive Date: 20210810
  Receipt Date: 20210818
  Transmission Date: 20211014
  Serious: Yes (Other)
  Sender: FDA-Public Use
  Company Number: US-BAUSCH-BL-2021-027088

PATIENT
  Age: 55 Year
  Sex: Female
  Weight: 108.96 kg

DRUGS (4)
  1. CHLORTHALIDONE. [Concomitant]
     Active Substance: CHLORTHALIDONE
     Indication: PRODUCT USED FOR UNKNOWN INDICATION
     Route: 048
  2. BUPROPION. [Concomitant]
     Active Substance: BUPROPION
     Indication: PRODUCT USED FOR UNKNOWN INDICATION
     Route: 048
  3. XIFAXAN [Suspect]
     Active Substance: RIFAXIMIN
     Indication: IRRITABLE BOWEL SYNDROME
     Route: 048
     Dates: start: 202107, end: 20210730
  4. LISINOPRIL. [Concomitant]
     Active Substance: LISINOPRIL
     Indication: PRODUCT USED FOR UNKNOWN INDICATION
     Route: 048

REACTIONS (5)
  - Haematochezia [Recovered/Resolved]
  - Diarrhoea [Recovered/Resolved]
  - Insomnia [Recovered/Resolved]
  - Abdominal distension [Recovered/Resolved]
  - Headache [Recovered/Resolved]

NARRATIVE: CASE EVENT DATE: 202107
